FAERS Safety Report 4822213-7 (Version None)
Quarter: 2005Q4

REPORT INFORMATION
  Report Type: 
  Country: None (occurrence: None)
  Receive Date: 20051103
  Receipt Date: 20051024
  Transmission Date: 20060501
  Serious: Yes (Hospitalization)
  Sender: FDA-Public Use
  Company Number: COV2-2005-00163

PATIENT
  Age: 64 Year
  Sex: Male
  Weight: 63.5 kg

DRUGS (1)
  1. FOSRENOL [Suspect]
     Indication: HYPERPHOSPHATAEMIA
     Dosage: 2250 MG, QD, ORAL
     Route: 048
     Dates: start: 20050701

REACTIONS (5)
  - ANAEMIA [None]
  - DISORIENTATION [None]
  - FIBROSIS [None]
  - HYPOGLYCAEMIA [None]
  - LUNG INFILTRATION [None]
